FAERS Safety Report 15658160 (Version 1)
Quarter: 2018Q4

REPORT INFORMATION
  Report Type: Spontaneous
  Country: FR (occurrence: FR)
  Receive Date: 20181126
  Receipt Date: 20181126
  Transmission Date: 20190205
  Serious: Yes (Hospitalization, Other)
  Sender: FDA-Public Use
  Company Number: FR-SEPTODONT-201804877

PATIENT
  Age: 31 Year
  Sex: Female

DRUGS (1)
  1. SEPTANEST 1/100,000 [Suspect]
     Active Substance: ARTICAINE HYDROCHLORIDE\EPINEPHRINE HYDROCHLORIDE
     Indication: DENTAL LOCAL ANAESTHESIA
     Dosage: INFECTED
     Route: 004
     Dates: start: 20181108

REACTIONS (7)
  - Malaise [Recovered/Resolved]
  - Movement disorder [Recovered/Resolved]
  - Facial paralysis [Recovered/Resolved]
  - Pallor [Recovered/Resolved]
  - Nuchal rigidity [Recovered/Resolved]
  - Respiratory disorder [Recovered/Resolved]
  - Presyncope [Recovered/Resolved]

NARRATIVE: CASE EVENT DATE: 20181108
